FAERS Safety Report 16073097 (Version 1)
Quarter: 2019Q1

REPORT INFORMATION
  Report Type: Spontaneous
  Country: GB (occurrence: GB)
  Receive Date: 20190314
  Receipt Date: 20190314
  Transmission Date: 20190418
  Serious: Yes (Other)
  Sender: FDA-Public Use
  Company Number: GB-MYLANLABS-2019M1023216

PATIENT
  Age: 88 Year
  Sex: Female
  Weight: 58 kg

DRUGS (10)
  1. FUROSEMIDE. [Concomitant]
     Active Substance: FUROSEMIDE
     Dosage: MORNING
     Dates: start: 20180522, end: 20180619
  2. GABAPENTIN. [Suspect]
     Active Substance: GABAPENTIN
     Indication: PRODUCT USED FOR UNKNOWN INDICATION
     Dosage: UNK
     Route: 065
     Dates: start: 20180626
  3. RISPERIDONE. [Concomitant]
     Active Substance: RISPERIDONE
     Dosage: 2 DOSAGE FORM, QD
     Dates: start: 20180227
  4. DIAZEPAM. [Concomitant]
     Active Substance: DIAZEPAM
     Dosage: 1 DOSAGE FORM
     Dates: start: 20180424, end: 20180504
  5. CETRABEN                           /01007601/ [Concomitant]
     Dosage: APPLY AS DIRECTED
     Dates: start: 20180618
  6. TRIMETHOPRIM. [Concomitant]
     Active Substance: TRIMETHOPRIM
     Dosage: 2 DOSAGE FORM, QD
     Dates: start: 20180615, end: 20180616
  7. MIRTAZAPINE. [Concomitant]
     Active Substance: MIRTAZAPINE
     Dosage: EVENING
     Dates: start: 20171110
  8. AMOXICILLIN. [Concomitant]
     Active Substance: AMOXICILLIN
     Dosage: 3 DOSAGE FORM, QD
     Dates: start: 20180503, end: 20180508
  9. LANSOPRAZOLE. [Concomitant]
     Active Substance: LANSOPRAZOLE
     Dosage: 1 DOSAGE FORM, QD
     Dates: start: 20180227
  10. FLUCLOXACILLIN [Concomitant]
     Active Substance: FLUCLOXACILLIN
     Dosage: 4 DOSAGE FORM, QD
     Dates: start: 20180604, end: 20180611

REACTIONS (1)
  - Gastric ulcer [Unknown]

NARRATIVE: CASE EVENT DATE: 20180626
